FAERS Safety Report 9439726 (Version 1)
Quarter: 2013Q3

REPORT INFORMATION
  Report Type: Spontaneous
  Country: US (occurrence: None)
  Receive Date: 20130802
  Receipt Date: 20130802
  Transmission Date: 20140515
  Serious: Yes (Other)
  Sender: FDA-Public Use
  Company Number: None

PATIENT
  Age: 70 Year
  Sex: Female
  Weight: 53.52 kg

DRUGS (1)
  1. SMZ/TMP DS [Suspect]
     Indication: URINARY TRACT INFECTION
     Dosage: 1 TABLET ONCE PO
     Route: 048
     Dates: start: 20130607, end: 20130607

REACTIONS (18)
  - Throat tightness [None]
  - Headache [None]
  - Pyrexia [None]
  - Tremor [None]
  - Cough [None]
  - Nausea [None]
  - Unevaluable event [None]
  - Vein disorder [None]
  - Gastric disorder [None]
  - Somnolence [None]
  - Asthenia [None]
  - Orthostatic hypotension [None]
  - Dizziness [None]
  - Confusional state [None]
  - Dysarthria [None]
  - Hallucination, visual [None]
  - Dysgeusia [None]
  - Decreased appetite [None]
